FAERS Safety Report 4934072-2 (Version None)
Quarter: 2006Q1

REPORT INFORMATION
  Report Type: 
  Country: None (occurrence: None)
  Receive Date: 20060303
  Receipt Date: 20060220
  Transmission Date: 20060701
  Serious: Yes (Hospitalization)
  Sender: FDA-Public Use
  Company Number: 2003185656US

PATIENT
  Age: 70 Year
  Sex: Female
  Weight: 69.4003 kg

DRUGS (2)
  1. EXEMESTANE [Suspect]
     Indication: BREAST CANCER
     Dosage: 25 MG (25 MG, 1 IN 1 D), ORAL
     Route: 048
     Dates: start: 20020520
  2. ZOCOR [Concomitant]

REACTIONS (10)
  - APHASIA [None]
  - BALANCE DISORDER [None]
  - BLOOD PRESSURE INCREASED [None]
  - CARDIOMEGALY [None]
  - CEREBRAL ISCHAEMIA [None]
  - NAUSEA [None]
  - PALPITATIONS [None]
  - TRANSIENT ISCHAEMIC ATTACK [None]
  - VISION BLURRED [None]
  - VISUAL ACUITY REDUCED [None]
